FAERS Safety Report 15075423 (Version 1)
Quarter: 2018Q2

REPORT INFORMATION
  Report Type: Spontaneous
  Country: US (occurrence: US)
  Receive Date: 20180627
  Receipt Date: 20180627
  Transmission Date: 20180711
  Serious: Yes (Hospitalization, Other)
  Sender: FDA-Public Use
  Company Number: US-SAOL THERAPEUTICS-2018SAO00112

PATIENT
  Age: 74 Year
  Sex: Female

DRUGS (12)
  1. ADVAIR HFA [Concomitant]
     Active Substance: FLUTICASONE PROPIONATE\SALMETEROL XINAFOATE
  2. FERROUS SULFATE. [Concomitant]
     Active Substance: FERROUS SULFATE
  3. LYRICA [Concomitant]
     Active Substance: PREGABALIN
  4. BACLOFEN. [Suspect]
     Active Substance: BACLOFEN
     Indication: MUSCLE SPASTICITY
     Dosage: UNK ?G/ML, \DAY
     Route: 037
  5. AMLODIPINE [Concomitant]
     Active Substance: AMLODIPINE BESYLATE
  6. ALBUTEROL. [Concomitant]
     Active Substance: ALBUTEROL
  7. ZOLOFT [Concomitant]
     Active Substance: SERTRALINE HYDROCHLORIDE
  8. BACLOFEN. [Suspect]
     Active Substance: BACLOFEN
     Indication: SPINAL CORD INJURY
  9. ASA [Concomitant]
     Active Substance: ASPIRIN
  10. DONEPEZIL. [Concomitant]
     Active Substance: DONEPEZIL
  11. FINASTERIDE. [Concomitant]
     Active Substance: FINASTERIDE
  12. MYRBETRIQ [Concomitant]
     Active Substance: MIRABEGRON

REACTIONS (6)
  - Confusional state [None]
  - Sleep apnoea syndrome [Unknown]
  - Haemoglobin decreased [Unknown]
  - Mental status changes [None]
  - Lethargy [Unknown]
  - Unresponsive to stimuli [Recovered/Resolved]

NARRATIVE: CASE EVENT DATE: 201801
